FAERS Safety Report 12583921 (Version 3)
Quarter: 2017Q4

REPORT INFORMATION
  Report Type: Report from Study
  Country: US (occurrence: US)
  Receive Date: 20160722
  Receipt Date: 20171124
  Transmission Date: 20180320
  Serious: No
  Sender: FDA-Public Use
  Company Number: PHEH2016US018081

PATIENT
  Sex: Female

DRUGS (1)
  1. GLEEVEC [Suspect]
     Active Substance: IMATINIB MESYLATE
     Indication: PRODUCT USED FOR UNKNOWN INDICATION
     Route: 065

REACTIONS (8)
  - Feeling hot [Unknown]
  - Stress [Unknown]
  - Tooth disorder [Unknown]
  - Headache [Unknown]
  - Tension [Unknown]
  - Swelling face [Unknown]
  - Head discomfort [Unknown]
  - Vomiting [Unknown]
